FAERS Safety Report 5326489-1 (Version None)
Quarter: 2007Q2

REPORT INFORMATION
  Report Type: 
  Country: None (occurrence: None)
  Receive Date: 20070516
  Receipt Date: 20070510
  Transmission Date: 20071010
  Serious: Yes (Death, Life-Threatening, Hospitalization)
  Sender: FDA-Public Use
  Company Number: US-BRACCO-BDI-009525

PATIENT
  Age: 39 Year
  Sex: Female

DRUGS (3)
  1. GASTROGRAFIN [Suspect]
     Indication: INTESTINAL OBSTRUCTION
     Route: 048
     Dates: start: 20060427, end: 20060427
  2. GASTROGRAFIN [Suspect]
     Indication: DIAGNOSTIC PROCEDURE
     Route: 048
     Dates: start: 20060427, end: 20060427
  3. BARIUM [Concomitant]
     Dosage: SIPS
     Route: 048
     Dates: start: 20060427, end: 20060427

REACTIONS (3)
  - ACUTE RESPIRATORY DISTRESS SYNDROME [None]
  - ASPIRATION [None]
  - SEPTIC SHOCK [None]
